FAERS Safety Report 20938288 (Version 1)
Quarter: 2022Q2

REPORT INFORMATION
  Report Type: Spontaneous
  Country: TW (occurrence: TW)
  Receive Date: 20220609
  Receipt Date: 20220609
  Transmission Date: 20220720
  Serious: No
  Sender: FDA-Public Use
  Company Number: TW-PFIZER INC-202200800946

PATIENT
  Age: 10 Decade

DRUGS (2)
  1. PAXLOVID [Suspect]
     Active Substance: NIRMATRELVIR\RITONAVIR
     Indication: COVID-19 treatment
     Dosage: UNK
  2. ACTEIN [Concomitant]
     Dosage: UNK

REACTIONS (1)
  - Product prescribing error [Unknown]
